FAERS Safety Report 9596687 (Version 1)
Quarter: 2013Q4

REPORT INFORMATION
  Report Type: Spontaneous
  Country: CA (occurrence: CA)
  Receive Date: 20131004
  Receipt Date: 20131004
  Transmission Date: 20140711
  Serious: Yes (Disabling)
  Sender: FDA-Public Use
  Company Number: CA-ROCHE-1283239

PATIENT
  Age: 54 Year
  Sex: Female
  Weight: 59.02 kg

DRUGS (2)
  1. NAPROSYN [Suspect]
     Indication: PRODUCT USED FOR UNKNOWN INDICATION
     Dosage: THERAPY DURATION: 8.0 DAYS
     Route: 065
  2. VASOTEC [Concomitant]
     Route: 065

REACTIONS (5)
  - Chills [Recovered/Resolved]
  - Eye swelling [Recovered/Resolved]
  - Fatigue [Recovered/Resolved]
  - Pyrexia [Recovered/Resolved]
  - Sedation [Recovered/Resolved]
